FAERS Safety Report 4420830-X (Version None)
Quarter: 2004Q3

REPORT INFORMATION
  Report Type: 
  Country: None (occurrence: None)
  Receive Date: 20040809
  Receipt Date: 20040611
  Transmission Date: 20050211
  Serious: No
  Sender: FDA-Public Use
  Company Number: US-GLAXOSMITHKLINE-A0514344A

PATIENT
  Age: 50 Year
  Sex: Female

DRUGS (1)
  1. PAXIL [Suspect]
     Indication: DEPRESSION
     Dosage: 40MG PER DAY
     Route: 048
     Dates: start: 19990101, end: 20040401

REACTIONS (5)
  - AGITATION [None]
  - DRUG WITHDRAWAL SYNDROME [None]
  - HEADACHE [None]
  - NERVOUSNESS [None]
  - TREMOR [None]
